FAERS Safety Report 13326604 (Version 1)
Quarter: 2017Q1

REPORT INFORMATION
  Report Type: Spontaneous
  Country: IT (occurrence: IT)
  Receive Date: 20170311
  Receipt Date: 20170311
  Transmission Date: 20170428
  Serious: Yes (Other)
  Sender: FDA-Public Use
  Company Number: IT-TEVA-745988ACC

PATIENT
  Age: 40 Year
  Sex: Male

DRUGS (2)
  1. HEPARIN SODIUM. [Suspect]
     Active Substance: HEPARIN SODIUM
     Indication: PROPHYLAXIS
  2. NADROPARIN [Suspect]
     Active Substance: NADROPARIN
     Indication: PROPHYLAXIS

REACTIONS (1)
  - Heparin-induced thrombocytopenia [Recovered/Resolved]
